FAERS Safety Report 7802023-9 (Version None)
Quarter: 2011Q4

REPORT INFORMATION
  Report Type: 
  Country: None (occurrence: None)
  Receive Date: 20111007
  Receipt Date: 20111003
  Transmission Date: 20120403
  Serious: Yes (Death)
  Sender: FDA-Public Use
  Company Number: PHEH2011US05768

PATIENT
  Sex: Male

DRUGS (2)
  1. DIOVAN HCT [Suspect]
     Dosage: 1 DF, QD (320 MG OF VALS AND 25 HYD)
  2. NEXIUM [Concomitant]
     Dosage: 40 MG, BID

REACTIONS (1)
  - DEATH [None]
